FAERS Safety Report 7782594-1 (Version None)
Quarter: 2011Q3

REPORT INFORMATION
  Report Type: 
  Country: None (occurrence: None)
  Receive Date: 20110923
  Receipt Date: 20110919
  Transmission Date: 20111222
  Serious: Yes (Other)
  Sender: FDA-Public Use
  Company Number: 2010SP004901

PATIENT
  Age: 23 Year
  Sex: Female
  Weight: 99.7913 kg

DRUGS (8)
  1. NUVARING [Suspect]
     Indication: MIGRAINE
     Dates: start: 20050706, end: 20080401
  2. NUVARING [Suspect]
     Indication: VAGINAL INFECTION
     Dates: start: 20050706, end: 20080401
  3. NUVARING [Suspect]
     Indication: DYSMENORRHOEA
     Dates: start: 20050706, end: 20080401
  4. NUVARING [Suspect]
     Indication: MENSTRUATION IRREGULAR
     Dates: start: 20050706, end: 20080401
  5. NUVARING [Suspect]
     Indication: MIGRAINE
     Dates: start: 20080811
  6. NUVARING [Suspect]
     Indication: VAGINAL INFECTION
     Dates: start: 20080811
  7. NUVARING [Suspect]
     Indication: DYSMENORRHOEA
     Dates: start: 20080811
  8. NUVARING [Suspect]
     Indication: MENSTRUATION IRREGULAR
     Dates: start: 20080811

REACTIONS (6)
  - WEIGHT INCREASED [None]
  - DEEP VEIN THROMBOSIS [None]
  - HEART RATE INCREASED [None]
  - WHITE BLOOD CELL COUNT INCREASED [None]
  - PULMONARY EMBOLISM [None]
  - PAIN [None]
